FAERS Safety Report 6826180-6 (Version None)
Quarter: 2010Q3

REPORT INFORMATION
  Report Type: 
  Country: None (occurrence: None)
  Receive Date: 20100709
  Receipt Date: 20100701
  Transmission Date: 20110219
  Serious: Yes (Hospitalization)
  Sender: FDA-Public Use
  Company Number: DE-NAPPMUNDI-DEU-2010-0006392

PATIENT
  Age: 92 Year
  Sex: Female

DRUGS (6)
  1. PALLADONE [Suspect]
     Indication: PRODUCT USED FOR UNKNOWN INDICATION
     Dosage: 16 MG, DAILY
     Route: 048
  2. BERLINSULIN                        /00646002/ [Concomitant]
  3. FUROSEMID                          /00032601/ [Concomitant]
  4. LEVOTHYROXINE SODIUM [Concomitant]
  5. LIORESAL [Concomitant]
  6. OXAZEPAM [Concomitant]

REACTIONS (1)
  - FAECALOMA [None]
